FAERS Safety Report 6445156-4 (Version None)
Quarter: 2009Q4

REPORT INFORMATION
  Report Type: 
  Country: None (occurrence: None)
  Receive Date: 20091117
  Receipt Date: 20091117
  Transmission Date: 20100525
  Serious: Yes (Life-Threatening, Hospitalization, Disabling, Other)
  Sender: FDA-Public Use
  Company Number: None

PATIENT
  Age: 58 Year
  Sex: Female
  Weight: 86.1834 kg

DRUGS (1)
  1. TAXOTERE [Suspect]

REACTIONS (9)
  - ASTHENIA [None]
  - GAIT DISTURBANCE [None]
  - IMMUNE SYSTEM DISORDER [None]
  - LARGE INTESTINAL HAEMORRHAGE [None]
  - OEDEMA PERIPHERAL [None]
  - PNEUMONIA [None]
  - PULMONARY OEDEMA [None]
  - THROMBOSIS [None]
  - VIRAL INFECTION [None]
